FAERS Safety Report 26181019 (Version 1)
Quarter: 2025Q4

REPORT INFORMATION
  Report Type: Spontaneous
  Country: US (occurrence: US)
  Receive Date: 20251221
  Receipt Date: 20251221
  Transmission Date: 20260117
  Serious: No
  Sender: UROGEN PHARMA
  Company Number: US-UROGEN PHARMA LTD.-2025-UGN-000209

PATIENT

DRUGS (5)
  1. ZUSDURI [Suspect]
     Active Substance: MITOMYCIN
     Indication: Bladder transitional cell carcinoma
     Dosage: 56 MILLILITER, ONCE A WEEK (INSTILLATION)
     Dates: start: 20251006, end: 20251006
  2. ZUSDURI [Suspect]
     Active Substance: MITOMYCIN
     Dosage: 56 MILLILITER, ONCE A WEEK (INSTILLATION)
     Dates: start: 20251013, end: 20251013
  3. ZUSDURI [Suspect]
     Active Substance: MITOMYCIN
     Dosage: 56 MILLILITER, ONCE A WEEK (INSTILLATION)
     Dates: start: 20251020, end: 20251020
  4. ZUSDURI [Suspect]
     Active Substance: MITOMYCIN
     Dosage: 56 MILLILITER, ONCE A WEEK (INSTILLATION)
     Dates: start: 20251027, end: 20251027
  5. ZUSDURI [Suspect]
     Active Substance: MITOMYCIN
     Dosage: 56 MILLILITER, ONCE A WEEK (INSTILLATION)
     Dates: start: 20251103, end: 20251103

REACTIONS (3)
  - Muscle spasms [Recovered/Resolved]
  - Cystitis [Recovered/Resolved]
  - Haematuria [Recovered/Resolved]

NARRATIVE: CASE EVENT DATE: 20251013
